FAERS Safety Report 8209437-6 (Version None)
Quarter: 2012Q1

REPORT INFORMATION
  Report Type: 
  Country: None (occurrence: None)
  Receive Date: 20120314
  Receipt Date: 20120306
  Transmission Date: 20120608
  Serious: Yes (Hospitalization)
  Sender: FDA-Public Use
  Company Number: US-CELGENEUS-163-21880-12030598

PATIENT
  Sex: Male

DRUGS (4)
  1. VELCADE [Concomitant]
     Route: 065
  2. DEXAMETHASONE [Concomitant]
     Route: 065
  3. REVLIMID [Suspect]
     Indication: MULTIPLE MYELOMA
     Dosage: 25 MILLIGRAM
     Route: 048
     Dates: start: 20111108, end: 20120302
  4. ACYCLOVIR [Concomitant]
     Route: 065

REACTIONS (1)
  - BLOOD SODIUM DECREASED [None]
